FAERS Safety Report 23695029 (Version 2)
Quarter: 2024Q2

REPORT INFORMATION
  Report Type: Report from Study
  Country: ES (occurrence: ES)
  Receive Date: 20240402
  Receipt Date: 20240402
  Transmission Date: 20240715
  Serious: Yes (Hospitalization)
  Sender: FDA-Public Use
  Company Number: None

PATIENT
  Age: 61 Year
  Sex: Male
  Weight: 89 kg

DRUGS (4)
  1. METHOTREXATE [Suspect]
     Active Substance: METHOTREXATE
     Indication: B-cell lymphoma
     Dosage: 10 CYCLE
     Dates: start: 20220131, end: 20220131
  2. CYTARABINE [Suspect]
     Active Substance: CYTARABINE
     Indication: B-cell lymphoma
     Dosage: 1 CYCLE
     Dates: start: 20220131, end: 20220131
  3. THIOTEPA [Suspect]
     Active Substance: THIOTEPA
     Indication: B-cell lymphoma
     Dosage: 1 CYCLE
     Dates: start: 20220131, end: 20220131
  4. RITUXIMAB [Suspect]
     Active Substance: RITUXIMAB
     Indication: B-cell lymphoma
     Dosage: 1 CYCLE 375 MG/M2
     Dates: start: 20220131, end: 20220131

REACTIONS (1)
  - Febrile neutropenia [Recovering/Resolving]

NARRATIVE: CASE EVENT DATE: 20220221
